FAERS Safety Report 5361164-9 (Version None)
Quarter: 2007Q2

REPORT INFORMATION
  Report Type: 
  Country: None (occurrence: None)
  Receive Date: 20070618
  Receipt Date: 20070612
  Transmission Date: 20071010
  Serious: Yes (Life-Threatening, Disabling, Other)
  Sender: FDA-Public Use
  Company Number: PK-MERCK-0706USA02217

PATIENT
  Age: 65 Year
  Sex: Female
  Weight: 80 kg

DRUGS (4)
  1. FOSAMAX [Suspect]
     Indication: OSTEOPOROSIS
     Route: 048
     Dates: start: 20070510, end: 20070525
  2. CALCIUM (UNSPECIFIED) [Concomitant]
     Indication: OSTEOPOROSIS
     Route: 048
     Dates: start: 20070510, end: 20070525
  3. VITAMIN D (UNSPECIFIED) [Concomitant]
     Indication: OSTEOPOROSIS
     Route: 048
     Dates: start: 20070510, end: 20070525
  4. [THERAPY UNSPECIFIED] [Concomitant]
     Indication: PAIN
     Route: 048
     Dates: start: 20070510

REACTIONS (1)
  - DEEP VEIN THROMBOSIS [None]
